FAERS Safety Report 9542080 (Version 2)
Quarter: 2013Q4

REPORT INFORMATION
  Report Type: Report from Study
  Country: US (occurrence: US)
  Receive Date: 20130923
  Receipt Date: 20131216
  Transmission Date: 20140711
  Serious: No
  Sender: FDA-Public Use
  Company Number: US-VERTEX PHARMACEUTICALS INC-2013-009747

PATIENT
  Age: 53 Year
  Sex: Female
  Weight: 88.89 kg

DRUGS (3)
  1. VX-950 (TELAPREVIR) [Suspect]
     Indication: HEPATITIS C
     Dosage: 750 MG, TID
     Route: 048
     Dates: start: 20130907, end: 20131125
  2. RIBAVIRIN [Suspect]
     Indication: HEPATITIS C
     Dosage: 600 MG, BID
     Route: 048
     Dates: start: 20130907, end: 20131125
  3. PEGASYS [Suspect]
     Indication: HEPATITIS C
     Dosage: 180 ?G, QW
     Dates: start: 20130907, end: 20131125

REACTIONS (5)
  - Constipation [Not Recovered/Not Resolved]
  - Pharyngeal oedema [Unknown]
  - Epistaxis [Unknown]
  - Mouth ulceration [Unknown]
  - Rash [Not Recovered/Not Resolved]
